FAERS Safety Report 4699672-6 (Version None)
Quarter: 2005Q2

REPORT INFORMATION
  Report Type: 
  Country: None (occurrence: None)
  Receive Date: 20050623
  Receipt Date: 20050616
  Transmission Date: 20051028
  Serious: Yes (Hospitalization)
  Sender: FDA-Public Use
  Company Number: CAP05000215

PATIENT
  Age: 65 Year
  Sex: Female

DRUGS (1)
  1. ACTONEL (RISEDRONATE SODIUIM)TABLET, 35MG [Suspect]
     Indication: OSTEOPOROSIS
     Dosage: 35 MG ONCE WEEKLY, ORAL
     Route: 048
     Dates: start: 20050501

REACTIONS (1)
  - PUSTULAR PSORIASIS [None]
